FAERS Safety Report 10328411 (Version 2)
Quarter: 2014Q3

REPORT INFORMATION
  Report Type: Spontaneous
  Country: IE (occurrence: IE)
  Receive Date: 20140721
  Receipt Date: 20140818
  Transmission Date: 20150326
  Serious: Yes (Death, Hospitalization)
  Sender: FDA-Public Use
  Company Number: IE-TAKEDA-2014JNJ004376

PATIENT

DRUGS (18)
  1. VALTREX [Concomitant]
     Active Substance: VALACYCLOVIR HYDROCHLORIDE
     Dosage: 500 MG, UNK
  2. REVLIMID [Concomitant]
     Active Substance: LENALIDOMIDE
     Dosage: 10 MG, UNK
  3. CALCICHEW [Concomitant]
     Active Substance: CALCIUM CARBONATE
  4. CARDICOR [Concomitant]
     Active Substance: BISOPROLOL
     Dosage: 1.25 MG, UNK
  5. PANADOL                            /00020001/ [Concomitant]
     Dosage: UNK
  6. TRAMADOL [Concomitant]
     Active Substance: TRAMADOL
  7. VELCADE [Suspect]
     Active Substance: BORTEZOMIB
     Indication: PLASMA CELL MYELOMA
     Dosage: 1.3 MG/M2, UNK
     Route: 065
     Dates: start: 20100805
  8. ELTROXIN [Concomitant]
     Active Substance: LEVOTHYROXINE
     Dosage: 100 MG, UNK
  9. LIPITOR [Concomitant]
     Active Substance: ATORVASTATIN CALCIUM
     Dosage: 40 MG, UNK
  10. FOLIC ACID. [Concomitant]
     Active Substance: FOLIC ACID
     Dosage: 5 MG, UNK
  11. NEXIUM [Concomitant]
     Active Substance: ESOMEPRAZOLE MAGNESIUM
     Dosage: 40 MG, UNK
  12. NEORECORMON [Concomitant]
     Active Substance: ERYTHROPOIETIN
     Dosage: UNK
  13. LYRICA [Concomitant]
     Active Substance: PREGABALIN
     Dosage: 25 MG, UNK
  14. DEXAMETHASONE. [Concomitant]
     Active Substance: DEXAMETHASONE
     Dosage: 20 MG, UNK
  15. DIGOXIN. [Concomitant]
     Active Substance: DIGOXIN
     Dosage: 0.625 MG, UNK
  16. DIFLUCAN [Concomitant]
     Active Substance: FLUCONAZOLE
     Dosage: 50 MG, UNK
  17. ALLOPURINOL. [Concomitant]
     Active Substance: ALLOPURINOL
     Dosage: 100 MG, UNK
  18. CYCLOPHOSPHAMIDE. [Concomitant]
     Active Substance: CYCLOPHOSPHAMIDE
     Dosage: 50 MG, UNK

REACTIONS (1)
  - Death [Fatal]

NARRATIVE: CASE EVENT DATE: 20140709
